FAERS Safety Report 23285355 (Version 2)
Quarter: 2023Q4

REPORT INFORMATION
  Report Type: Spontaneous
  Country: JP (occurrence: None)
  Receive Date: 20231211
  Receipt Date: 20231221
  Transmission Date: 20240110
  Serious: Yes (Death, Life-Threatening)
  Sender: FDA-Public Use
  Company Number: 2023A278729

PATIENT
  Age: 88 Year
  Sex: Female
  Weight: 44 kg

DRUGS (8)
  1. ONDEXXYA [Suspect]
     Active Substance: ANDEXANET ALFA
     Indication: Putamen haemorrhage
     Dosage: DOSE UNKNOWN
     Route: 042
     Dates: start: 20230805, end: 20230805
  2. EDOXABAN TOSYLATE [Concomitant]
     Active Substance: EDOXABAN TOSYLATE
     Dosage: 30.0MG UNKNOWN
  3. NICARDIPINE HYDROCHLORIDE [Concomitant]
     Active Substance: NICARDIPINE HYDROCHLORIDE
     Indication: Putamen haemorrhage
     Dosage: 5 - 6 ML/HR CONTINUOUS INTRAVENOUS INJECTION
     Route: 042
     Dates: start: 20230805, end: 20230808
  4. RABEPRAZOLE SODIUM [Concomitant]
     Active Substance: RABEPRAZOLE SODIUM
     Indication: Putamen haemorrhage
     Route: 048
     Dates: start: 20230806, end: 20230807
  5. PENTASA [Concomitant]
     Active Substance: MESALAMINE
     Indication: Colitis ulcerative
     Route: 048
     Dates: start: 20230806, end: 20230807
  6. MIYA-BM [Concomitant]
     Active Substance: CLOSTRIDIUM BUTYRICUM SPORES STRAIN M-55
     Indication: Colitis ulcerative
     Route: 048
     Dates: start: 20230806, end: 20230808
  7. AMLODIPINE [Concomitant]
     Active Substance: AMLODIPINE BESYLATE
     Indication: Putamen haemorrhage
     Route: 048
     Dates: start: 20230806, end: 20230808
  8. OLMESARTAN MEDOXOMIL [Concomitant]
     Active Substance: OLMESARTAN MEDOXOMIL
     Indication: Putamen haemorrhage
     Route: 048
     Dates: start: 20230806, end: 20230808

REACTIONS (6)
  - Arterial occlusive disease [Fatal]
  - Mesenteric arterial occlusion [Fatal]
  - Intracardiac thrombus [Fatal]
  - Gastrointestinal necrosis [Fatal]
  - Pneumonia aspiration [Fatal]
  - Renal artery stenosis [Unknown]

NARRATIVE: CASE EVENT DATE: 20230801
